FAERS Safety Report 6387970-X (Version None)
Quarter: 2009Q3

REPORT INFORMATION
  Report Type: 
  Country: None (occurrence: None)
  Receive Date: 20090930
  Receipt Date: 20090916
  Transmission Date: 20100115
  Serious: Yes (Hospitalization)
  Sender: FDA-Public Use
  Company Number: 1000009101

PATIENT
  Age: 63 Year
  Sex: Female

DRUGS (7)
  1. CITALOPRAM HYDROBROMIDE [Suspect]
     Indication: ANXIETY
     Dosage: 20 MG (20 MG, 1 IN 1 D), ORAL 10 MG, (10 MG, 1 IN 1 D), ORAL
     Route: 048
     Dates: start: 20090715, end: 20090716
  2. CITALOPRAM HYDROBROMIDE [Suspect]
     Indication: ANXIETY
     Dosage: 20 MG (20 MG, 1 IN 1 D), ORAL 10 MG, (10 MG, 1 IN 1 D), ORAL
     Route: 048
     Dates: start: 20090717, end: 20090807
  3. CITALOPRAM HYDROBROMIDE [Suspect]
     Indication: ANXIETY
     Dosage: 20 MG (20 MG, 1 IN 1 D), ORAL 10 MG, (10 MG, 1 IN 1 D), ORAL
     Route: 048
     Dates: start: 20090810
  4. CANDESARTAN CILEXETIL (TABLETS) [Concomitant]
  5. MULTI-VITAMIN [Concomitant]
  6. DEEP-SEA FISH OIL [Concomitant]
  7. FLUID SODIUM [Concomitant]

REACTIONS (8)
  - ANXIETY [None]
  - ASTHENIA [None]
  - DECREASED APPETITE [None]
  - DIZZINESS [None]
  - HEADACHE [None]
  - HYPOTENSION [None]
  - MALAISE [None]
  - NAUSEA [None]
